FAERS Safety Report 11560961 (Version 1)
Quarter: 2015Q3

REPORT INFORMATION
  Report Type: Spontaneous
  Country: US (occurrence: US)
  Receive Date: 20150916
  Receipt Date: 20150916
  Transmission Date: 20151125
  Serious: No
  Sender: FDA-Public Use
  Company Number: US-ELI_LILLY_AND_COMPANY-US200810002579

PATIENT
  Age: 66 Year
  Sex: Female

DRUGS (2)
  1. CALCIUM [Concomitant]
     Active Substance: CALCIUM
     Dosage: 1200 U, DAILY (1/D)
  2. FORTEO [Suspect]
     Active Substance: TERIPARATIDE
     Dates: start: 200707

REACTIONS (13)
  - Thyroid disorder [Unknown]
  - Contusion [Recovered/Resolved]
  - Visual acuity reduced [Unknown]
  - Fall [Recovered/Resolved]
  - Osteitis [Unknown]
  - Musculoskeletal pain [Recovered/Resolved]
  - Neck pain [Recovering/Resolving]
  - Anxiety [Unknown]
  - Fall [Recovered/Resolved]
  - Blood calcium increased [Recovered/Resolved]
  - Contusion [Recovered/Resolved]
  - Pain in extremity [Recovered/Resolved]
  - Headache [Recovering/Resolving]

NARRATIVE: CASE EVENT DATE: 200712
